FAERS Safety Report 6172957-2 (Version None)
Quarter: 2009Q2

REPORT INFORMATION
  Report Type: 
  Country: None (occurrence: None)
  Receive Date: 20090430
  Receipt Date: 20090424
  Transmission Date: 20091009
  Serious: Yes (Life-Threatening)
  Sender: FDA-Public Use
  Company Number: ES-AVENTIS-200912268EU

PATIENT
  Age: 11 Month
  Sex: Male

DRUGS (6)
  1. CLEXANE [Suspect]
     Route: 058
     Dates: start: 20090211, end: 20090218
  2. CEFTRIAXONE [Suspect]
     Indication: MENINGITIS
     Route: 042
     Dates: start: 20090211, end: 20090218
  3. VANCOMYCIN HCL [Suspect]
     Indication: MENINGITIS
     Route: 042
     Dates: start: 20090126, end: 20090217
  4. CEFOTAXIME [Concomitant]
     Indication: MENINGITIS
     Route: 042
     Dates: start: 20090126, end: 20090211
  5. DEXAMETASON [Concomitant]
     Route: 042
     Dates: start: 20090126, end: 20090130
  6. NOLOTIL                            /00473101/ [Concomitant]
     Route: 042
     Dates: start: 20090126, end: 20090130

REACTIONS (1)
  - NEUTROPENIA [None]
